FAERS Safety Report 7071816-0 (Version None)
Quarter: 2010Q4

REPORT INFORMATION
  Report Type: 
  Country: None (occurrence: None)
  Receive Date: 20101029
  Receipt Date: 20091105
  Transmission Date: 20110411
  Serious: No
  Sender: FDA-Public Use
  Company Number: A0813393A

PATIENT
  Age: 80 Year
  Sex: Male

DRUGS (11)
  1. ADVAIR DISKUS 100/50 [Suspect]
     Indication: EMPHYSEMA
     Dosage: 1PUFF TWICE PER DAY
     Route: 055
     Dates: start: 20090812, end: 20090801
  2. GLIMEPIRIDE [Concomitant]
  3. FUROSEMIDE [Concomitant]
  4. METOPROLOL [Concomitant]
  5. ZETIA [Concomitant]
  6. ASPIRIN [Concomitant]
  7. PLAVIX [Concomitant]
  8. SPIRONOLACTONE [Concomitant]
  9. DIGOXIN [Concomitant]
  10. LIPITOR [Concomitant]
  11. SPIRIVA [Concomitant]

REACTIONS (7)
  - ADVERSE REACTION [None]
  - APHONIA [None]
  - DYSPHONIA [None]
  - FUNGAL INFECTION [None]
  - INFLAMMATION [None]
  - OROPHARYNGEAL PAIN [None]
  - SPEECH DISORDER [None]
